FAERS Safety Report 16680562 (Version 1)
Quarter: 2019Q3

REPORT INFORMATION
  Report Type: Spontaneous
  Country: TR (occurrence: TR)
  Receive Date: 20190807
  Receipt Date: 20190807
  Transmission Date: 20191004
  Serious: No
  Sender: FDA-Public Use
  Company Number: TR-LUPIN PHARMACEUTICALS INC.-2019-02095

PATIENT
  Age: 5 Month
  Sex: Male

DRUGS (4)
  1. LEVETIRACETAM. [Suspect]
     Active Substance: LEVETIRACETAM
     Dosage: 35 MILLIGRAM/KILOGRAM, QD
     Route: 065
  2. LEVETIRACETAM. [Suspect]
     Active Substance: LEVETIRACETAM
     Dosage: 35 MILLIGRAM/KILOGRAM, QD
     Route: 065
  3. LEVETIRACETAM. [Suspect]
     Active Substance: LEVETIRACETAM
     Indication: HYPOXIC-ISCHAEMIC ENCEPHALOPATHY
     Dosage: 87 MILLIGRAM/KILOGRAM, QD
     Route: 065
  4. PHENOBARBITAL. [Concomitant]
     Active Substance: PHENOBARBITAL
     Indication: HYPOXIC-ISCHAEMIC ENCEPHALOPATHY
     Dosage: 6 MILLIGRAM/KILOGRAM, QD
     Route: 065

REACTIONS (2)
  - Accidental overdose [Unknown]
  - No adverse event [Unknown]
